FAERS Safety Report 18633516 (Version 3)
Quarter: 2021Q2

REPORT INFORMATION
  Report Type: Spontaneous
  Country: JP (occurrence: JP)
  Receive Date: 20201218
  Receipt Date: 20210611
  Transmission Date: 20210717
  Serious: Yes (Death, Life-Threatening, Other)
  Sender: FDA-Public Use
  Company Number: JP-009507513-2012JPN000880J

PATIENT
  Age: 58 Year
  Sex: Female
  Weight: 44 kg

DRUGS (15)
  1. OXYCODONE [OXYCODONE HYDROCHLORIDE] [Concomitant]
     Active Substance: OXYCODONE HYDROCHLORIDE
     Dosage: 36 MILLIGRAM, QD
     Route: 058
     Dates: start: 20201103, end: 20201107
  2. OXYCODONE [OXYCODONE HYDROCHLORIDE] [Concomitant]
     Active Substance: OXYCODONE HYDROCHLORIDE
     Dosage: 0.1 MILLILITER
     Route: 058
     Dates: start: 20201030, end: 20201103
  3. GOSHAJINKIGAN [Concomitant]
     Active Substance: HERBALS
     Dosage: 1 PACKET, TID
     Route: 048
     Dates: start: 20191104, end: 20201114
  4. OXYCODONE [OXYCODONE HYDROCHLORIDE] [Concomitant]
     Active Substance: OXYCODONE HYDROCHLORIDE
     Indication: PAIN
     Dosage: 24 MILLIGRAM, QD
     Route: 058
     Dates: start: 20201030, end: 20201103
  5. CALONAL [Concomitant]
     Active Substance: ACETAMINOPHEN
     Indication: PAIN
     Dosage: 600 MILLIGRAM, QID
     Route: 048
     Dates: start: 20201030, end: 20201114
  6. OXYCODONE [OXYCODONE HYDROCHLORIDE] [Concomitant]
     Active Substance: OXYCODONE HYDROCHLORIDE
     Dosage: 0.2 MILLILITER
     Route: 058
     Dates: start: 20201107, end: 20201115
  7. GOREISAN [ALISMA ORIENTALE TUBER;ATRACTYLODES LANCEA RHIZOME;CINNAMOMU [Concomitant]
     Indication: DEEP VEIN THROMBOSIS
     Dosage: 1 PACKET, TID
     Route: 048
     Dates: start: 20200820, end: 20201114
  8. OXYCODONE [OXYCODONE HYDROCHLORIDE] [Concomitant]
     Active Substance: OXYCODONE HYDROCHLORIDE
     Dosage: 48 MILLIGRAM, QD
     Route: 058
     Dates: start: 20201107, end: 20201115
  9. ELIQUIS [Concomitant]
     Active Substance: APIXABAN
     Indication: DEEP VEIN THROMBOSIS
     Dosage: 5 MILLIGRAM, BID
     Route: 048
     Dates: start: 20200918, end: 20201114
  10. OXYCODONE [OXYCODONE HYDROCHLORIDE] [Concomitant]
     Active Substance: OXYCODONE HYDROCHLORIDE
     Dosage: 0.15 MILLILITER
     Route: 058
     Dates: start: 20201103, end: 20201107
  11. VALPROATE SODIUM. [Concomitant]
     Active Substance: VALPROATE SODIUM
     Indication: PAIN
     Dosage: 200 MILLIGRAM, QD
     Route: 048
     Dates: start: 20201103, end: 20201114
  12. KEYTRUDA [Suspect]
     Active Substance: PEMBROLIZUMAB
     Indication: UTERINE CANCER
     Dosage: 200 MILLIGRAM, Q3W
     Route: 041
     Dates: start: 20201106, end: 20201127
  13. LYRICA [Concomitant]
     Active Substance: PREGABALIN
     Indication: PAIN
     Dosage: 150 MILLIGRAM, BID
     Route: 048
     Dates: start: 20201106, end: 20201114
  14. LANSOPRAZOLE. [Concomitant]
     Active Substance: LANSOPRAZOLE
     Indication: PROPHYLAXIS
     Dosage: 15 MILLIGRAM, QD
     Route: 048
     Dates: start: 20200806, end: 20201114
  15. LOXOPROFEN NA [Concomitant]
     Active Substance: LOXOPROFEN SODIUM
     Indication: PAIN
     Dosage: 60 MILLIGRAM, TID
     Route: 048
     Dates: start: 20191101, end: 20201114

REACTIONS (9)
  - Klebsiella test positive [Not Recovered/Not Resolved]
  - Malignant neoplasm progression [Fatal]
  - Disseminated intravascular coagulation [Not Recovered/Not Resolved]
  - Thrombocytopenia [Not Recovered/Not Resolved]
  - Lacunar infarction [Recovering/Resolving]
  - Delirium [Not Recovered/Not Resolved]
  - Pyrexia [Not Recovered/Not Resolved]
  - Blood pressure decreased [Not Recovered/Not Resolved]
  - Constipation [Not Recovered/Not Resolved]

NARRATIVE: CASE EVENT DATE: 2020
